FAERS Safety Report 10086245 (Version 1)
Quarter: 2014Q2

REPORT INFORMATION
  Report Type: Spontaneous
  Country: GB (occurrence: GB)
  Receive Date: 20140418
  Receipt Date: 20140418
  Transmission Date: 20141212
  Serious: Yes (Hospitalization, Disabling)
  Sender: FDA-Public Use
  Company Number: GB-TEVA-474236ISR

PATIENT
  Age: 26 Year
  Sex: Female

DRUGS (6)
  1. METOCLOPRAMIDE [Suspect]
     Indication: NAUSEA
     Route: 048
     Dates: start: 20140324, end: 20140325
  2. CYCLIZINE [Concomitant]
  3. MOVICOL [Concomitant]
  4. PRO D3 [Concomitant]
  5. FOLIC ACID [Concomitant]
  6. LACTULOSE [Concomitant]

REACTIONS (5)
  - Oculogyric crisis [Recovered/Resolved]
  - Dizziness [Recovered/Resolved]
  - Vision blurred [Recovered/Resolved]
  - Gaze palsy [Recovered/Resolved]
  - Dysstasia [Recovered/Resolved]
